FAERS Safety Report 6548516-6 (Version None)
Quarter: 2010Q1

REPORT INFORMATION
  Report Type: 
  Country: None (occurrence: None)
  Receive Date: 20100124
  Receipt Date: 20090817
  Transmission Date: 20100710
  Serious: No
  Sender: FDA-Public Use
  Company Number: US-ALLERGAN-0911312US

PATIENT
  Sex: Female

DRUGS (4)
  1. RESTASIS [Suspect]
     Indication: DRY EYE
     Dosage: UNK
     Route: 047
     Dates: start: 20090701
  2. STEROID [Suspect]
     Dosage: UNK
     Route: 047
  3. STEROID [Suspect]
     Dosage: UNK
     Route: 047
  4. STEROID [Suspect]
     Dosage: UNK
     Route: 047

REACTIONS (4)
  - DRUG INEFFECTIVE [None]
  - EPISCLERITIS [None]
  - EYE IRRITATION [None]
  - LACRIMATION INCREASED [None]
